FAERS Safety Report 7313988-6 (Version None)
Quarter: 2011Q1

REPORT INFORMATION
  Report Type: 
  Country: None (occurrence: None)
  Receive Date: 20110225
  Receipt Date: 20110216
  Transmission Date: 20110831
  Serious: Yes (Other)
  Sender: FDA-Public Use
  Company Number: PHHO2011US03406

PATIENT
  Age: 45 Year
  Sex: Female
  Weight: 66 kg

DRUGS (1)
  1. FTY 720 [Suspect]
     Indication: MULTIPLE SCLEROSIS
     Dosage: DOSE BLINDED
     Route: 048

REACTIONS (5)
  - DYSPNOEA [None]
  - ATRIOVENTRICULAR BLOCK COMPLETE [None]
  - SUBCUTANEOUS ABSCESS [None]
  - CARDIAC ARREST [None]
  - VENTRICULAR TACHYCARDIA [None]
